FAERS Safety Report 4375540-4 (Version None)
Quarter: 2004Q2

REPORT INFORMATION
  Report Type: 
  Country: None (occurrence: None)
  Receive Date: 20040607
  Receipt Date: 20040524
  Transmission Date: 20050107
  Serious: Yes (Hospitalization, Other)
  Sender: FDA-Public Use
  Company Number: 2004020478

PATIENT
  Age: 65 Year
  Sex: Female
  Weight: 81.6475 kg

DRUGS (6)
  1. ZYRTEC [Suspect]
     Indication: HYPERSENSITIVITY
     Dosage: ORAL
     Route: 048
     Dates: start: 20000101
  2. ATORVASTATIN (ATORVASTATIN) [Concomitant]
  3. METOPROLOL SUCCINATE [Concomitant]
  4. VALSARTAN (VALSARTAN) [Concomitant]
  5. ACETYLSALICYLIC ACID SRT [Concomitant]
  6. PANGAMIC ACID (PANGAMIC ACID) [Concomitant]

REACTIONS (2)
  - DRUG EFFECT DECREASED [None]
  - QUADRUPLE VESSEL BYPASS GRAFT [None]
